FAERS Safety Report 11949930 (Version 1)
Quarter: 2016Q1

REPORT INFORMATION
  Report Type: Spontaneous
  Country: US (occurrence: None)
  Receive Date: 20160121
  Receipt Date: 20160121
  Transmission Date: 20160526
  Serious: Yes (Life-Threatening)
  Sender: FDA-Public Use
  Company Number: None

PATIENT
  Age: 60 Year
  Sex: Female
  Weight: 84.82 kg

DRUGS (2)
  1. ZANAFLEX [Suspect]
     Active Substance: TIZANIDINE HYDROCHLORIDE
     Indication: MUSCLE SPASMS
     Dosage: 1 PILL FOUR TIMES DAILY TAKEN BY MOUTH
  2. NEBULIZER [Concomitant]
     Active Substance: DEVICE

REACTIONS (2)
  - Hypotension [None]
  - Heart rate decreased [None]

NARRATIVE: CASE EVENT DATE: 20151220
